FAERS Safety Report 8276308-9 (Version None)
Quarter: 2012Q2

REPORT INFORMATION
  Report Type: 
  Country: None (occurrence: None)
  Receive Date: 20120409
  Receipt Date: 20120327
  Transmission Date: 20120825
  Serious: Yes (Other)
  Sender: FDA-Public Use
  Company Number: 7101702

PATIENT
  Age: 46 Year
  Sex: Male

DRUGS (3)
  1. LEVOTHYROXINE SODIUM [Suspect]
     Indication: HYPOTHYROIDISM
     Dosage: 50 MCG (50 MCG, 1 IN 1 D), 25 MCG (25 MCG, 1 IN 1 D), 35 MCG (25 MCG, 1 IN 1 D), ORAL
     Route: 048
     Dates: end: 20120201
  2. LEVOTHYROXINE SODIUM [Suspect]
     Indication: HYPOTHYROIDISM
     Dosage: 50 MCG (50 MCG, 1 IN 1 D), 25 MCG (25 MCG, 1 IN 1 D), 35 MCG (25 MCG, 1 IN 1 D), ORAL
     Route: 048
     Dates: start: 20110301, end: 20110401
  3. LEVOTHYROXINE SODIUM [Suspect]
     Indication: HYPOTHYROIDISM
     Dosage: 50 MCG (50 MCG, 1 IN 1 D), 25 MCG (25 MCG, 1 IN 1 D), 35 MCG (25 MCG, 1 IN 1 D), ORAL
     Route: 048
     Dates: start: 20110401, end: 20111213

REACTIONS (2)
  - HYPERTHYROIDISM [None]
  - CONDITION AGGRAVATED [None]
